FAERS Safety Report 18395062 (Version 2)
Quarter: 2020Q4

REPORT INFORMATION
  Report Type: Spontaneous
  Country: US (occurrence: US)
  Receive Date: 20201016
  Receipt Date: 20201104
  Transmission Date: 20210114
  Serious: Yes (Other)
  Sender: FDA-Public Use
  Company Number: US-ASTRAZENECA-2020SF33010

PATIENT
  Age: 67 Year
  Sex: Male
  Weight: 108.9 kg

DRUGS (4)
  1. BYDUREON BCISE [Suspect]
     Active Substance: EXENATIDE
     Indication: TYPE 2 DIABETES MELLITUS
     Route: 058
  2. LISINOPRIL. [Concomitant]
     Active Substance: LISINOPRIL
     Route: 048
  3. METFORMIN [Concomitant]
     Active Substance: METFORMIN HYDROCHLORIDE
     Indication: TYPE 2 DIABETES MELLITUS
     Route: 048
  4. INSULIN [Concomitant]
     Active Substance: INSULIN NOS

REACTIONS (17)
  - Dyspnoea [Unknown]
  - Device defective [Unknown]
  - Blood glucose increased [Unknown]
  - Limb discomfort [Unknown]
  - Dysphagia [Unknown]
  - Hypophagia [Unknown]
  - Throat irritation [Unknown]
  - Weight decreased [Unknown]
  - Fluid intake reduced [Unknown]
  - Sputum discoloured [Unknown]
  - Asthenia [Unknown]
  - Dyspepsia [Unknown]
  - Illness [Unknown]
  - Incorrect dose administered by device [Unknown]
  - Exposure to chemical pollution [Unknown]
  - Injection site mass [Unknown]
  - Choking [Unknown]

NARRATIVE: CASE EVENT DATE: 2019
